FAERS Safety Report 17892448 (Version 1)
Quarter: 2020Q2

REPORT INFORMATION
  Report Type: Report from Study
  Country: None (occurrence: BR)
  Receive Date: 20200613
  Receipt Date: 20200613
  Transmission Date: 20200714
  Serious: Yes (Death, Other)
  Sender: FDA-Public Use
  Company Number: BR-ABBVIE-20K-020-3443899-00

PATIENT
  Age: 64 Year
  Sex: Female

DRUGS (1)
  1. HUMIRA [Suspect]
     Active Substance: ADALIMUMAB
     Indication: CROHN^S DISEASE
     Route: 058
     Dates: start: 20150729

REACTIONS (3)
  - Mouth haemorrhage [Unknown]
  - Haemorrhagic stroke [Fatal]
  - Epistaxis [Unknown]

NARRATIVE: CASE EVENT DATE: 2020
